FAERS Safety Report 8125681-0 (Version None)
Quarter: 2012Q1

REPORT INFORMATION
  Report Type: 
  Country: None (occurrence: None)
  Receive Date: 20120209
  Receipt Date: 20120125
  Transmission Date: 20120608
  Serious: Yes (Death, Other)
  Sender: FDA-Public Use
  Company Number: GR-PFIZER INC-2012031932

PATIENT
  Age: 40 Year
  Sex: Female

DRUGS (16)
  1. DOXORUBICIN HCL [Suspect]
     Indication: CHRONIC LYMPHOCYTIC LEUKAEMIA
  2. RITUXIMAB [Concomitant]
  3. VINBLASTINE [Concomitant]
  4. METHYLPREDNISOLONE [Concomitant]
  5. MITOGUAZONE [Concomitant]
  6. NAVELBINE [Concomitant]
  7. IFOSFAMIDE [Concomitant]
  8. CISPLATIN [Suspect]
     Indication: CHRONIC LYMPHOCYTIC LEUKAEMIA
  9. CYCLOPHOSPHAMIDE [Concomitant]
  10. PREDNISOLONE [Concomitant]
  11. FLUDARABINE PHOSPHATE [Suspect]
     Indication: CHRONIC LYMPHOCYTIC LEUKAEMIA
  12. VINCRISTINE SULFATE [Suspect]
     Indication: CHRONIC LYMPHOCYTIC LEUKAEMIA
  13. BLEOMYCIN [Concomitant]
  14. ETOPOSIDE [Suspect]
     Indication: CHRONIC LYMPHOCYTIC LEUKAEMIA
  15. DACARBAZINE [Concomitant]
  16. CYTARABINE [Concomitant]

REACTIONS (4)
  - APLASIA [None]
  - DISEASE PROGRESSION [None]
  - SEPSIS [None]
  - CHRONIC LYMPHOCYTIC LEUKAEMIA [None]
